FAERS Safety Report 15611247 (Version 1)
Quarter: 2018Q4

REPORT INFORMATION
  Report Type: Spontaneous
  Country: US (occurrence: US)
  Receive Date: 20181113
  Receipt Date: 20181113
  Transmission Date: 20190205
  Serious: No
  Sender: FDA-Public Use
  Company Number: US-ZYDUS-019313

PATIENT
  Age: 83 Year
  Sex: Male

DRUGS (3)
  1. SACUBITRIL/VALSARTAN [Concomitant]
     Indication: CARDIAC FAILURE
     Dosage: 24-26 MG
  2. CARVEDILOL/CARVEDILOL HYDROCHLODRIDE [Concomitant]
     Indication: ATRIAL FIBRILLATION
     Dosage: VARIABLE
     Route: 048
  3. AMIODARONE [Suspect]
     Active Substance: AMIODARONE
     Indication: VENTRICULAR TACHYCARDIA
     Route: 048
     Dates: start: 201801

REACTIONS (5)
  - Presyncope [Not Recovered/Not Resolved]
  - Dizziness [Not Recovered/Not Resolved]
  - Impaired quality of life [Not Recovered/Not Resolved]
  - Diplopia [Not Recovered/Not Resolved]
  - Gait disturbance [Not Recovered/Not Resolved]

NARRATIVE: CASE EVENT DATE: 201801
